FAERS Safety Report 15170629 (Version 2)
Quarter: 2018Q3

REPORT INFORMATION
  Report Type: Spontaneous
  Country: US (occurrence: US)
  Receive Date: 20180720
  Receipt Date: 20180731
  Transmission Date: 20181010
  Serious: Yes (Other)
  Sender: FDA-Public Use
  Company Number: US-009507513-1807USA005734

PATIENT
  Age: 38 Year
  Sex: Male
  Weight: 78 kg

DRUGS (4)
  1. COLESEVELAM HYDROCHLORIDE. [Suspect]
     Active Substance: COLESEVELAM HYDROCHLORIDE
     Indication: LIPIDS INCREASED
     Dosage: 625 MG, DAILY REGIMENS
     Route: 048
  2. ZETIA [Suspect]
     Active Substance: EZETIMIBE
     Indication: LIPIDS INCREASED
     Dosage: 10 MG, DAILY REGIMEN
     Route: 048
  3. ROSUVASTATIN. [Suspect]
     Active Substance: ROSUVASTATIN
     Indication: LIPIDS INCREASED
     Dosage: 20 MG, DAILY REGIMEN
  4. NIACIN. [Suspect]
     Active Substance: NIACIN
     Dosage: 500 MG, DAILY REGIMEN

REACTIONS (1)
  - Drug ineffective [Unknown]
